FAERS Safety Report 8710955 (Version 2)
Quarter: 2013Q4

REPORT INFORMATION
  Report Type: Spontaneous
  Country: US (occurrence: US)
  Receive Date: 20120807
  Receipt Date: 20131025
  Transmission Date: 20140711
  Serious: Yes (Other)
  Sender: FDA-Public Use
  Company Number: US-BAYER-2012-079345

PATIENT
  Age: 25 Year
  Sex: Female
  Weight: 63 kg

DRUGS (8)
  1. MIRENA [Suspect]
     Dosage: 20 MCG/24HR, CONT
     Route: 015
     Dates: start: 20080812, end: 20110726
  2. EFEXOR [Concomitant]
     Indication: DEPRESSION
     Dosage: 75 MG, BID
     Route: 048
     Dates: start: 2008, end: 2011
  3. ADDERALL [Concomitant]
     Indication: ATTENTION DEFICIT/HYPERACTIVITY DISORDER
     Dosage: 20 MG, UNK
     Route: 048
     Dates: start: 2009, end: 2011
  4. CLONAZEPAM [Concomitant]
     Indication: ANXIETY
     Dosage: 0.5 MG, TID
     Route: 048
     Dates: start: 2009, end: 2011
  5. DOXYCYCLINE [Concomitant]
     Route: 048
  6. TYLENOL #3 [Concomitant]
     Route: 048
  7. LORTAB [Concomitant]
     Route: 048
  8. XANAX [Concomitant]

REACTIONS (8)
  - Uterine perforation [None]
  - Menstruation irregular [None]
  - Device issue [None]
  - Abdominal pain [None]
  - Pelvic pain [None]
  - Injury [None]
  - Pain [None]
  - Emotional disorder [None]
